FAERS Safety Report 7451084-8 (Version None)
Quarter: 2011Q2

REPORT INFORMATION
  Report Type: 
  Country: None (occurrence: None)
  Receive Date: 20110502
  Receipt Date: 20110419
  Transmission Date: 20111010
  Serious: Yes (Hospitalization, Other)
  Sender: FDA-Public Use
  Company Number: DE-ROCHE-773955

PATIENT
  Sex: Female

DRUGS (5)
  1. LEVOTHYROXINE SODIUM [Concomitant]
  2. ROFERON-A [Suspect]
     Dosage: PAUSED IN OCT 2010 FOR ONE WEEK, 2 PAUSES OF 3 WEEKS ON UNREPORTED DATES
     Route: 065
     Dates: start: 20100201
  3. AMLODIPINE [Concomitant]
     Indication: HYPERTENSION
  4. AVASTIN [Suspect]
     Dosage: PAUSED IN OCT 2010 FOR ONE WEEK, 2 PAUSES OF 3 WEEKS ON UNREPORTED DATES
     Route: 065
     Dates: start: 20100201
  5. ANTIHYPERTENSIVE NOS [Concomitant]
     Indication: HYPERTENSION

REACTIONS (7)
  - ASTHENIA [None]
  - BLOOD PRESSURE DECREASED [None]
  - LOSS OF CONSCIOUSNESS [None]
  - NAUSEA [None]
  - EPILEPSY [None]
  - CONFUSIONAL STATE [None]
  - DECREASED APPETITE [None]
